FAERS Safety Report 6378061-2 (Version None)
Quarter: 2009Q3

REPORT INFORMATION
  Report Type: 
  Country: None (occurrence: None)
  Receive Date: 20090925
  Receipt Date: 20090915
  Transmission Date: 20100115
  Serious: Yes (Death)
  Sender: FDA-Public Use
  Company Number: JP-ABBOTT-09P-087-0599235-00

PATIENT
  Age: 57 Year
  Sex: Male

DRUGS (7)
  1. LEUPLIN SR FOR INJECTION 11.25 MG [Suspect]
     Indication: PROSTATE CANCER
     Route: 058
     Dates: start: 20060704, end: 20071005
  2. AMINOLEBAN EN [Concomitant]
     Indication: HEPATIC CIRRHOSIS
     Route: 048
     Dates: end: 20080109
  3. LASIX [Concomitant]
     Indication: HEPATIC CIRRHOSIS
     Route: 048
     Dates: end: 20080109
  4. ALDACTONE [Concomitant]
     Indication: HEPATIC CIRRHOSIS
     Route: 048
     Dates: end: 20080109
  5. GASTER D [Concomitant]
     Indication: GASTRIC ULCER
     Route: 048
     Dates: end: 20080109
  6. ALLOPURINOL [Concomitant]
     Indication: GOUT
     Route: 048
     Dates: end: 20080109
  7. MUCOSTA [Concomitant]
     Indication: GASTRITIS
     Route: 048
     Dates: end: 20080109

REACTIONS (1)
  - HEPATIC CIRRHOSIS [None]
